FAERS Safety Report 9528531 (Version 1)
Quarter: 2013Q3

REPORT INFORMATION
  Report Type: Spontaneous
  Country: TW (occurrence: TW)
  Receive Date: 20130917
  Receipt Date: 20130917
  Transmission Date: 20140515
  Serious: Yes (Life-Threatening, Other)
  Sender: FDA-Public Use
  Company Number: TW-SANOFI-AVENTIS-2013SA090788

PATIENT
  Age: 86 Year
  Sex: Male

DRUGS (4)
  1. RIFATER [Suspect]
     Indication: TUBERCULOSIS
     Route: 048
  2. RIFATER [Suspect]
     Indication: TUBERCULOSIS
     Route: 048
     Dates: end: 20130727
  3. ETHAMBUTOL [Suspect]
     Indication: TUBERCULOSIS
     Route: 048
  4. ETHAMBUTOL [Suspect]
     Indication: TUBERCULOSIS
     Route: 048
     Dates: end: 20130727

REACTIONS (12)
  - Pneumonia [Unknown]
  - Body temperature increased [Unknown]
  - Anaphylactic shock [Recovered/Resolved]
  - Blood pressure decreased [Unknown]
  - Heart rate increased [Unknown]
  - Coma [Unknown]
  - Hypoglycaemia [Unknown]
  - Tremor [Unknown]
  - Decreased appetite [Unknown]
  - Abdominal discomfort [Unknown]
  - Nausea [Unknown]
  - Vomiting [Unknown]
